FAERS Safety Report 10362392 (Version 1)
Quarter: 2014Q3

REPORT INFORMATION
  Report Type: Spontaneous
  Country: US (occurrence: None)
  Receive Date: 20140723
  Receipt Date: 20140723
  Transmission Date: 20150326
  Serious: Yes (Life-Threatening, Hospitalization)
  Sender: FDA-Public Use
  Company Number: 1713747-2013-99907

PATIENT
  Age: 70 Year
  Sex: Female

DRUGS (23)
  1. CALCIUM CARBONATE. [Concomitant]
     Active Substance: CALCIUM CARBONATE
  2. ASPIRIN. [Concomitant]
     Active Substance: ASPIRIN
  3. LIPITOR [Concomitant]
     Active Substance: ATORVASTATIN CALCIUM
  4. COLACE [Concomitant]
     Active Substance: DOCUSATE SODIUM
  5. COMBISET BLOODLINES [Concomitant]
  6. ALLOPURINOL. [Concomitant]
     Active Substance: ALLOPURINOL
  7. NEURONITN [Concomitant]
  8. NOVOLOG [Concomitant]
     Active Substance: INSULIN ASPART
  9. ISORDIL [Concomitant]
     Active Substance: ISOSORBIDE DINITRATE
  10. TYLENOL [Concomitant]
     Active Substance: ACETAMINOPHEN
  11. GABAPENTIN. [Concomitant]
     Active Substance: GABAPENTIN
  12. FRESNIUS [Concomitant]
  13. NATURALYTE [Concomitant]
     Active Substance: ACETIC ACID\SODIUM ACETATE
  14. VITAMIN D [Concomitant]
     Active Substance: CHOLECALCIFEROL
  15. HUMULIN NOS [Concomitant]
     Active Substance: INSULIN HUMAN
  16. TOPRAL XL [Concomitant]
  17. OPTIFLUX DIALYZER [Concomitant]
  18. VITAMIN B12 [Concomitant]
     Active Substance: CYANOCOBALAMIN
  19. NOVOLIN [Concomitant]
     Active Substance: INSULIN HUMAN
  20. LEXAPRO [Concomitant]
     Active Substance: ESCITALOPRAM OXALATE
  21. MULTIVITAMIN [Concomitant]
     Active Substance: VITAMINS
  22. 0.9% SODIUM CHLORIDE [Suspect]
     Active Substance: SODIUM CHLORIDE
     Indication: HAEMODIALYSIS
     Dosage: IV VIA AV FISTULA
     Route: 042
     Dates: start: 20130507
  23. OSCAL [Concomitant]
     Active Substance: CALCIUM CARBONATE

REACTIONS (5)
  - Oxygen saturation decreased [None]
  - Agitation [None]
  - Mental status changes [None]
  - Lethargy [None]
  - Restlessness [None]

NARRATIVE: CASE EVENT DATE: 20130507
